FAERS Safety Report 19179249 (Version 1)
Quarter: 2021Q2

REPORT INFORMATION
  Report Type: Spontaneous
  Country: US (occurrence: US)
  Receive Date: 20210423
  Receipt Date: 20210423
  Transmission Date: 20210717
  Serious: Yes (Hospitalization)
  Sender: FDA-Public Use
  Company Number: None

PATIENT
  Age: 68 Year
  Sex: Female

DRUGS (14)
  1. VALSARTAN 80MG [Concomitant]
     Active Substance: VALSARTAN
  2. WARFARIN SODIUM. [Concomitant]
     Active Substance: WARFARIN SODIUM
  3. VTIAMIN E 400 IU CAPSULE [Concomitant]
  4. SUPER OMEGA?3 CAPSULE [Concomitant]
  5. PEPCID 40MG [Concomitant]
  6. MULTIVITAMIN [Concomitant]
     Active Substance: VITAMINS
  7. COLACE [Concomitant]
     Active Substance: DOCUSATE SODIUM
  8. ATORVASTATIN [Concomitant]
     Active Substance: ATORVASTATIN
  9. ZETIA [Concomitant]
     Active Substance: EZETIMIBE
  10. ASPIRIN 81MG [Concomitant]
     Active Substance: ASPIRIN
  11. PROPRANOLOL [Concomitant]
     Active Substance: PROPRANOLOL HYDROCHLORIDE
  12. JUXTAPID [Suspect]
     Active Substance: LOMITAPIDE MESYLATE
     Indication: TYPE IIA HYPERLIPIDAEMIA
     Route: 048
  13. LEXAPRO [Concomitant]
     Active Substance: ESCITALOPRAM OXALATE
  14. VALSARTAN 160MG [Concomitant]
     Active Substance: VALSARTAN

REACTIONS (2)
  - Therapy interrupted [None]
  - Anaemia [None]
